FAERS Safety Report 8317506 (Version 2)
Quarter: 2013Q2

REPORT INFORMATION
  Report Type: Spontaneous
  Country: US (occurrence: US)
  Receive Date: 20111231
  Receipt Date: 20130514
  Transmission Date: 20140414
  Serious: Yes (Other)
  Sender: FDA-Public Use
  Company Number: CHPA2011US018575

PATIENT
  Age: 65 Year
  Sex: Female

DRUGS (4)
  1. EXCEDRIN EXTRA STRENGTH [Suspect]
     Dosage: UNK, UNK
     Route: 048
  2. PROPRANOLOL [Concomitant]
     Indication: MIGRAINE
     Dosage: 120 MG, QD
     Route: 048
     Dates: start: 2012
  3. EXCEDRIN TENSION HEADACHE [Concomitant]
     Indication: TENSION HEADACHE
     Dosage: UNK
     Route: 048
     Dates: end: 2012
  4. FIORICET W/CODEINE [Concomitant]
     Indication: MIGRAINE
     Dosage: 1 UNK, PRN
     Route: 048

REACTIONS (2)
  - Gastric ulcer [Recovered/Resolved]
  - Incorrect drug administration duration [Unknown]
